FAERS Safety Report 7517047-9 (Version None)
Quarter: 2011Q2

REPORT INFORMATION
  Report Type: 
  Country: None (occurrence: None)
  Receive Date: 20110601
  Receipt Date: 20110525
  Transmission Date: 20111010
  Serious: Yes (Hospitalization)
  Sender: FDA-Public Use
  Company Number: CA-ABBOTT-11P-028-0728869-00

PATIENT
  Sex: Male
  Weight: 86.26 kg

DRUGS (5)
  1. WELLBUTRIN [Concomitant]
     Indication: SMOKING CESSATION THERAPY
     Route: 048
     Dates: start: 20100101
  2. HUMIRA [Suspect]
     Indication: CROHN'S DISEASE
     Route: 058
     Dates: start: 20100308, end: 20110501
  3. HUMIRA [Suspect]
  4. HUMIRA [Suspect]
     Route: 058
     Dates: start: 20110518, end: 20110518
  5. TYLENOL W/ CODEINE [Concomitant]
     Indication: CROHN'S DISEASE
     Route: 048
     Dates: start: 19800101

REACTIONS (3)
  - INTESTINAL STENOSIS [None]
  - CHEST PAIN [None]
  - INTESTINAL OBSTRUCTION [None]
